FAERS Safety Report 8956947 (Version 2)
Quarter: 2012Q4

REPORT INFORMATION
  Report Type: Report from Study
  Country: US (occurrence: US)
  Receive Date: 20121210
  Receipt Date: 20121227
  Transmission Date: 20130627
  Serious: Yes (Death)
  Sender: FDA-Public Use
  Company Number: US-ABBOTT-12P-163-1018617-00

PATIENT
  Age: 52 None
  Sex: Male

DRUGS (3)
  1. HUMIRA PEN [Suspect]
     Indication: PSORIASIS
     Route: 058
     Dates: start: 20090731, end: 201206
  2. HUMIRA PEN [Suspect]
     Indication: PSORIASIS
  3. UNKNOWN MEDICATION [Concomitant]
     Indication: HYPERTENSION
     Dates: end: 20120629

REACTIONS (19)
  - Cardiac arrest [Fatal]
  - Hypertension [Fatal]
  - Chest pain [Fatal]
  - Renal impairment [Fatal]
  - Hepatic function abnormal [Fatal]
  - Malaise [Fatal]
  - Decreased appetite [Fatal]
  - Abdominal distension [Fatal]
  - Oedema peripheral [Fatal]
  - Ascites [Fatal]
  - Pancreatitis [Fatal]
  - Hepatic cirrhosis [Fatal]
  - Pleural effusion [Fatal]
  - Hypotension [Fatal]
  - Respiratory failure [Fatal]
  - Acute hepatic failure [Fatal]
  - Anaemia [Fatal]
  - Coagulopathy [Fatal]
  - Cystitis [Fatal]
